FAERS Safety Report 15608433 (Version 1)
Quarter: 2018Q4

REPORT INFORMATION
  Report Type: Spontaneous
  Country: HR (occurrence: HR)
  Receive Date: 20181112
  Receipt Date: 20181112
  Transmission Date: 20190205
  Serious: Yes (Other)
  Sender: FDA-Public Use
  Company Number: PHHY2018HR151876

PATIENT
  Sex: Female

DRUGS (2)
  1. SANVAL [Suspect]
     Active Substance: ZOLPIDEM TARTRATE
     Indication: PRODUCT USED FOR UNKNOWN INDICATION
     Dosage: 50 MG, QD
     Route: 048
     Dates: start: 20180915, end: 20180915
  2. TRITTICO [Suspect]
     Active Substance: TRAZODONE HYDROCHLORIDE
     Indication: PRODUCT USED FOR UNKNOWN INDICATION
     Dosage: 300 MG, QD
     Route: 048
     Dates: start: 20180915, end: 20180915

REACTIONS (2)
  - Somnolence [Unknown]
  - Suicide attempt [Unknown]

NARRATIVE: CASE EVENT DATE: 20180915
